FAERS Safety Report 4709195-3 (Version None)
Quarter: 2005Q3

REPORT INFORMATION
  Report Type: 
  Country: None (occurrence: None)
  Receive Date: 20050705
  Receipt Date: 20050622
  Transmission Date: 20060218
  Serious: Yes (Hospitalization)
  Sender: FDA-Public Use
  Company Number: 2005091813

PATIENT
  Sex: Female
  Weight: 65.7716 kg

DRUGS (4)
  1. DETROL LA [Suspect]
     Indication: INCONTINENCE
     Dosage: 4 MG (4 MG, 1 IN 1 D); UNKNOWN
     Route: 065
     Dates: start: 20050301, end: 20050301
  2. BENICAR HCT [Concomitant]
  3. CENTRUM SILVER (ASCORBIC ACID, CALCIUM, MINERALS NOS, RETINOL, TOCOPHE [Concomitant]
  4. CALCIUM GLUCONATE [Concomitant]

REACTIONS (5)
  - CORONARY ARTERY OCCLUSION [None]
  - DISEASE RECURRENCE [None]
  - FEELING ABNORMAL [None]
  - TREATMENT NONCOMPLIANCE [None]
  - URINARY INCONTINENCE [None]
